FAERS Safety Report 18739159 (Version 2)
Quarter: 2021Q1

REPORT INFORMATION
  Report Type: Spontaneous
  Country: US (occurrence: US)
  Receive Date: 20210114
  Receipt Date: 20210114
  Transmission Date: 20210419
  Serious: No
  Sender: FDA-Public Use
  Company Number: US-ALLERGAN-2042414US

PATIENT
  Sex: Female

DRUGS (2)
  1. UBRELVY [Suspect]
     Active Substance: UBROGEPANT
     Indication: MIGRAINE
     Dosage: UNK
     Route: 048
  2. UBRELVY [Suspect]
     Active Substance: UBROGEPANT
     Indication: MIGRAINE
     Dosage: UNK

REACTIONS (4)
  - Nausea [Recovered/Resolved]
  - Chills [Recovered/Resolved]
  - Drug ineffective [Unknown]
  - Diarrhoea [Recovered/Resolved]
